FAERS Safety Report 11158717 (Version 2)
Quarter: 2015Q3

REPORT INFORMATION
  Report Type: Spontaneous
  Country: US (occurrence: US)
  Receive Date: 20150603
  Receipt Date: 20150721
  Transmission Date: 20151125
  Serious: No
  Sender: FDA-Public Use
  Company Number: US-PFIZER INC-2015175836

PATIENT
  Age: 2 Month
  Sex: Male
  Weight: 11 kg

DRUGS (5)
  1. PHENERGAN PROMETHAZINE-DM [Concomitant]
     Dosage: (6.25-15MG/5ML)
  2. ZITHROMAX [Suspect]
     Active Substance: AZITHROMYCIN DIHYDRATE
     Indication: EAR INFECTION
     Dosage: 200 MG FOR 5 ML, DAY 1
     Dates: start: 20150521
  3. AZITHROMYCIN [Suspect]
     Active Substance: AZITHROMYCIN ANHYDROUS
     Dosage: UNK
  4. ZITHROMAX [Suspect]
     Active Substance: AZITHROMYCIN DIHYDRATE
     Indication: BRONCHITIS
     Dosage: 2 ML FOR DAY 2 TO 5, DAILY
  5. PHENERGAN PROMETHAZINE-DM [Concomitant]
     Dosage: 2 ML (2 ML BY MOUTH, 3 TO 4 TIMES A DAY), DAILY
     Route: 048

REACTIONS (1)
  - Rash [Not Recovered/Not Resolved]
